FAERS Safety Report 5306620-4 (Version None)
Quarter: 2007Q2

REPORT INFORMATION
  Report Type: 
  Country: None (occurrence: None)
  Receive Date: 20070424
  Receipt Date: 20070130
  Transmission Date: 20071010
  Serious: Yes (Other)
  Sender: FDA-Public Use
  Company Number: US-PFIZER INC-2007023003

PATIENT
  Age: 55 Year
  Sex: Female

DRUGS (1)
  1. LIPITOR [Suspect]

REACTIONS (11)
  - AGITATION [None]
  - ASTHENIA [None]
  - GAIT DISTURBANCE [None]
  - HEART RATE INCREASED [None]
  - LETHARGY [None]
  - MUSCULAR WEAKNESS [None]
  - PALPITATIONS [None]
  - RESTLESS LEGS SYNDROME [None]
  - SENSORY DISTURBANCE [None]
  - SOMNOLENCE [None]
  - TREMOR [None]
